FAERS Safety Report 8859219 (Version 4)
Quarter: 2013Q2

REPORT INFORMATION
  Report Type: Spontaneous
  Country: GB (occurrence: None)
  Receive Date: 20121023
  Receipt Date: 20130610
  Transmission Date: 20140414
  Serious: Yes (Other)
  Sender: FDA-Public Use
  Company Number: HRA-CDB20120276

PATIENT
  Age: 34 Year
  Sex: Female
  Weight: 87 kg

DRUGS (2)
  1. ELLAONE [Suspect]
     Indication: CONTRACEPTION
     Route: 048
     Dates: start: 20120918, end: 20120918
  2. EVRA [Concomitant]

REACTIONS (5)
  - Pregnancy after post coital contraception [None]
  - Mental disorder [None]
  - Maternal exposure before pregnancy [None]
  - Malaise [None]
  - Treatment failure [None]
